FAERS Safety Report 5066213-3 (Version None)
Quarter: 2006Q3

REPORT INFORMATION
  Report Type: 
  Country: None (occurrence: None)
  Receive Date: 20060801
  Receipt Date: 20060720
  Transmission Date: 20061208
  Serious: Yes (Hospitalization)
  Sender: FDA-Public Use
  Company Number: US-JNJFOC-20060600308

PATIENT
  Sex: Female
  Weight: 86.18 kg

DRUGS (13)
  1. REMICADE [Suspect]
     Indication: RHEUMATOID ARTHRITIS
     Route: 042
  2. SOLU-MEDROL [Concomitant]
  3. ARTHROTEC [Concomitant]
  4. LASIX [Concomitant]
  5. XANAX [Concomitant]
  6. ZOLOFT [Concomitant]
  7. PROTONIX [Concomitant]
  8. VITAMIN D [Concomitant]
  9. CALCIUM GLUCONATE [Concomitant]
  10. PREDNISONE [Concomitant]
     Dosage: MORNING BEFORE INFLIXIMAB
  11. PREDNISONE [Concomitant]
     Indication: PREMEDICATION
     Dosage: NIGHT BEFORE INFLIXIMAB
  12. PERCOCET-5 [Concomitant]
     Dosage: 5/325 MG DAILY
  13. PANGESTYME [Concomitant]

REACTIONS (3)
  - GASTROOESOPHAGEAL REFLUX DISEASE [None]
  - LIPASE INCREASED [None]
  - URINARY TRACT INFECTION [None]
